FAERS Safety Report 20695901 (Version 9)
Quarter: 2022Q3

REPORT INFORMATION
  Report Type: Report from Study
  Country: US (occurrence: US)
  Receive Date: 20220411
  Receipt Date: 20220712
  Transmission Date: 20221026
  Serious: Yes (Other)
  Sender: FDA-Public Use
  Company Number: US-HORIZON THERAPEUTICS-HZN-2022-001376

PATIENT

DRUGS (9)
  1. TEPEZZA [Suspect]
     Active Substance: TEPROTUMUMAB-TRBW
     Indication: Endocrine ophthalmopathy
     Dosage: FIRST INFUSION 850 MG THEN 1699MG FOR SEVEN INFUSIONS
     Route: 042
     Dates: start: 20220125
  2. TEPEZZA [Suspect]
     Active Substance: TEPROTUMUMAB-TRBW
     Dosage: INFUSION 2, EVERY 21 DAYS
     Route: 042
     Dates: start: 2022
  3. TEPEZZA [Suspect]
     Active Substance: TEPROTUMUMAB-TRBW
     Dosage: INFUSION 3, EVERY 21 DAYS
     Route: 042
     Dates: start: 2022
  4. TEPEZZA [Suspect]
     Active Substance: TEPROTUMUMAB-TRBW
     Dosage: INFUSION 4, EVERY 21 DAYS
     Route: 042
     Dates: start: 20220518
  5. TEPEZZA [Suspect]
     Active Substance: TEPROTUMUMAB-TRBW
     Dosage: INFUSION 5 , EVERY 21 DAYS
     Route: 042
     Dates: start: 2022
  6. TEPEZZA [Suspect]
     Active Substance: TEPROTUMUMAB-TRBW
     Dosage: INFUSION 6 , EVERY 21 DAYS
     Route: 042
     Dates: start: 2022
  7. METHIMAZOLE [Concomitant]
     Active Substance: METHIMAZOLE
     Indication: Product used for unknown indication
     Route: 065
  8. TEARS [HYALURONATE SODIUM] [Concomitant]
     Indication: Product used for unknown indication
     Route: 065
  9. LORATADINE [Concomitant]
     Active Substance: LORATADINE
     Indication: Product used for unknown indication
     Route: 065

REACTIONS (8)
  - Renal impairment [Not Recovered/Not Resolved]
  - Renal disorder [Not Recovered/Not Resolved]
  - Blood creatinine increased [Not Recovered/Not Resolved]
  - Alopecia [Recovering/Resolving]
  - Blood glucose increased [Not Recovered/Not Resolved]
  - Hypertension [Not Recovered/Not Resolved]
  - Nephropathy toxic [Unknown]
  - Body mass index increased [Unknown]

NARRATIVE: CASE EVENT DATE: 20220110
